FAERS Safety Report 23429570 (Version 2)
Quarter: 2024Q1

REPORT INFORMATION
  Report Type: Report from Study
  Country: US (occurrence: US)
  Receive Date: 20240122
  Receipt Date: 20240130
  Transmission Date: 20240409
  Serious: No
  Sender: FDA-Public Use
  Company Number: US-ZENPEP LLC-2024AIMT00066

PATIENT

DRUGS (2)
  1. ZENPEP [Suspect]
     Active Substance: PANCRELIPASE AMYLASE\PANCRELIPASE LIPASE\PANCRELIPASE PROTEASE
     Indication: Pancreatic failure
     Dosage: ZENPEP 25 000 UPS UNITS 100CT CAPSULES
     Route: 048
     Dates: start: 20231212, end: 20240104
  2. ZENPEP [Suspect]
     Active Substance: PANCRELIPASE AMYLASE\PANCRELIPASE LIPASE\PANCRELIPASE PROTEASE
     Dosage: ZENPEP 25 000 UPS UNITS, ONCE, LAST DOSE PRIOR EVENT
     Route: 048

REACTIONS (1)
  - Diarrhoea [Recovered/Resolved]
